FAERS Safety Report 18991747 (Version 1)
Quarter: 2021Q1

REPORT INFORMATION
  Report Type: Spontaneous
  Country: US (occurrence: US)
  Receive Date: 20210310
  Receipt Date: 20210310
  Transmission Date: 20210420
  Serious: Yes (Hospitalization, Other)
  Sender: FDA-Public Use
  Company Number: US-GW PHARMA-202103USGW01009

PATIENT

DRUGS (1)
  1. EPIDIOLEX [Suspect]
     Active Substance: CANNABIDIOL
     Indication: EPILEPSY
     Dosage: 22.02 MG/KG/DAY, 500 MILLIGRAM, BID
     Route: 048

REACTIONS (5)
  - Prescribed overdose [Unknown]
  - Toxic shock syndrome [Recovered/Resolved]
  - Seizure [Unknown]
  - Incorrect dose administered [Unknown]
  - Dysphagia [Recovering/Resolving]

NARRATIVE: CASE EVENT DATE: 2021
